FAERS Safety Report 4836396-6 (Version None)
Quarter: 2005Q4

REPORT INFORMATION
  Report Type: 
  Country: None (occurrence: None)
  Receive Date: 20051123
  Receipt Date: 20051114
  Transmission Date: 20060501
  Serious: Yes (Other)
  Sender: FDA-Public Use
  Company Number: PHBS2005JP16767

PATIENT

DRUGS (2)
  1. TEGRETOL [Suspect]
  2. NITOROL [Concomitant]

REACTIONS (1)
  - LOSS OF CONSCIOUSNESS [None]
